FAERS Safety Report 11614831 (Version 3)
Quarter: 2015Q4

REPORT INFORMATION
  Report Type: Spontaneous
  Country: DE (occurrence: DE)
  Receive Date: 20151009
  Receipt Date: 20151022
  Transmission Date: 20160304
  Serious: Yes (Life-Threatening, Hospitalization, Other)
  Sender: FDA-Public Use
  Company Number: DE-AMGEN-DEUSP2010015134

PATIENT
  Sex: Male

DRUGS (11)
  1. VINCRISTINE [Suspect]
     Active Substance: VINCRISTINE
     Indication: B-CELL LYMPHOMA
     Dosage: 3.64 MG, 1 IN 2 WK, FOR 1 DAY
     Route: 042
     Dates: start: 20150915, end: 20150915
  2. POSACONAZOL [Concomitant]
     Active Substance: POSACONAZOLE
     Indication: FUNGAL INFECTION
     Dosage: 15 ML, UNK
     Route: 048
  3. PEGFILGRASTIM [Suspect]
     Active Substance: PEGFILGRASTIM
     Indication: B-CELL LYMPHOMA
     Dosage: 6 MG, 1 IN 2 WK, FOR 1 DAY
     Route: 058
     Dates: start: 20150918, end: 20150918
  4. CIPROFLOXACIN. [Concomitant]
     Active Substance: CIPROFLOXACIN
     Indication: PROPHYLAXIS
     Dosage: 1000 MG, 7 IN 1 CYCLICAL
     Route: 048
     Dates: start: 20150712
  5. SULFAMETHOXAZOLE-TRIMETHOPRIM (SMZ) [Concomitant]
     Active Substance: SULFAMETHOXAZOLE\TRIMETHOPRIM
     Dosage: 1920 MG, 2 IN 1 CYCLICAL (1 CYCLE : 2 DAY)
     Route: 048
     Dates: start: 20150706
  6. ACICLOVIR [Concomitant]
     Active Substance: ACYCLOVIR
     Indication: PROPHYLAXIS
     Dosage: 1600 MG, UNK
     Route: 048
     Dates: start: 20150706
  7. DOXORUBICINE                       /00330901/ [Suspect]
     Active Substance: DOXORUBICIN
     Indication: B-CELL LYMPHOMA
     Dosage: 91 MG, 1 IN 2 WK, FOR 1 DAY
     Route: 042
     Dates: start: 20150915, end: 20150915
  8. PREDNISONE. [Suspect]
     Active Substance: PREDNISONE
     Indication: B-CELL LYMPHOMA
     Dosage: 100 MG, FOR 5 DAY
     Route: 048
     Dates: start: 20150915, end: 20150919
  9. CYCLOPHOSPHAMIDE. [Suspect]
     Active Substance: CYCLOPHOSPHAMIDE
     Indication: B-CELL LYMPHOMA
     Dosage: 1365 MG, 1 IN 2 WK, FOR 1 DAY
     Route: 042
     Dates: start: 20150915, end: 20150915
  10. MESNA. [Concomitant]
     Active Substance: MESNA
     Indication: PROPHYLAXIS
     Dosage: 900 MG, 1 IN1 CYCLICAL, FOR 1 DAY
     Route: 048
     Dates: start: 20150915, end: 20150915
  11. RITUXIMAB [Concomitant]
     Active Substance: RITUXIMAB
     Dosage: UNK
     Route: 042
     Dates: end: 20150831

REACTIONS (6)
  - Vertigo [Recovered/Resolved]
  - General physical health deterioration [Recovering/Resolving]
  - Pneumonia [Not Recovered/Not Resolved]
  - Thrombocytopenia [Recovered/Resolved]
  - Leukopenia [Recovered/Resolved]
  - Upper respiratory tract infection [Recovering/Resolving]

NARRATIVE: CASE EVENT DATE: 20150924
